FAERS Safety Report 4912316-0 (Version None)
Quarter: 2006Q1

REPORT INFORMATION
  Report Type: 
  Country: None (occurrence: None)
  Receive Date: 20060215
  Receipt Date: 20060208
  Transmission Date: 20060701
  Serious: Yes (Hospitalization, Other)
  Sender: FDA-Public Use
  Company Number: ES-AVENTIS-200611227GDDC

PATIENT
  Age: 63 Year
  Sex: Female
  Weight: 88 kg

DRUGS (4)
  1. ARAVA [Suspect]
     Indication: RHEUMATOID ARTHRITIS
     Route: 048
     Dates: start: 20051104, end: 20051201
  2. VOLTAREN [Suspect]
     Route: 048
     Dates: start: 20051104
  3. OMEPRAZOLE [Concomitant]
     Route: 048
     Dates: start: 20040405
  4. FORTZAAR [Concomitant]
     Dosage: DOSE: 100/25
     Route: 048
     Dates: start: 20051001

REACTIONS (1)
  - HEPATIC ENZYME INCREASED [None]
